FAERS Safety Report 4277985-X (Version None)
Quarter: 2004Q1

REPORT INFORMATION
  Report Type: 
  Country: None (occurrence: None)
  Receive Date: 20040121
  Receipt Date: 20040105
  Transmission Date: 20041129
  Serious: Yes (Life-Threatening, Hospitalization)
  Sender: FDA-Public Use
  Company Number: A02200400075

PATIENT
  Age: 54 Year
  Sex: Male

DRUGS (5)
  1. STILNOX - (ZOLPIDEM) - TABLET - 10 MG [Suspect]
     Dosage: 10 MG OD, ORAL
     Route: 048
  2. MODOPAR - (LEVODOPA/BENSERAZIDE) -UKNOWN - UNIT DOSE: UNKNOWN/TABLET - [Suspect]
     Indication: PARKINSON'S DISEASE
     Dosage: NI UNK; /NI UNK; ORAL
     Route: 048
     Dates: start: 19950101, end: 19951105
  3. MODOPAR - (LEVODOPA/BENSERAZIDE) -UKNOWN - UNIT DOSE: UNKNOWN/TABLET - [Suspect]
     Indication: PARKINSON'S DISEASE
     Dosage: NI UNK; /NI UNK; ORAL
     Route: 048
     Dates: start: 20031106
  4. SPASFON - (PHLOROGLUCINOL/TRIMETHYLPHLOROGLUCINOL) - UNKNOWN - UNIT DO [Suspect]
     Dosage: 6 DF QD; ORAL
     Route: 048
  5. XANAX [Suspect]
     Dosage: 2 DF QD; ORAL
     Route: 048

REACTIONS (18)
  - ANURIA [None]
  - BLOOD CREATINE PHOSPHOKINASE INCREASED [None]
  - BLOOD CREATININE INCREASED [None]
  - BLOOD PRESSURE DECREASED [None]
  - BLOOD SODIUM INCREASED [None]
  - BLOOD UREA INCREASED [None]
  - CIRCULATORY COLLAPSE [None]
  - CYTOLYTIC HEPATITIS [None]
  - DRUG WITHDRAWAL SYNDROME [None]
  - HYPERGLYCAEMIA [None]
  - HYPERTHERMIA [None]
  - HYPERTHERMIA MALIGNANT [None]
  - HYPOKALAEMIA [None]
  - LEUKOCYTOSIS [None]
  - OEDEMA PERIPHERAL [None]
  - OLIGURIA [None]
  - PLATELET COUNT DECREASED [None]
  - RENAL IMPAIRMENT [None]
